FAERS Safety Report 5742513-6 (Version None)
Quarter: 2008Q2

REPORT INFORMATION
  Report Type: 
  Country: None (occurrence: None)
  Receive Date: 20080519
  Receipt Date: 20080515
  Transmission Date: 20081010
  Serious: Yes (Hospitalization)
  Sender: FDA-Public Use
  Company Number: A0699692A

PATIENT
  Age: 63 Year
  Sex: Female

DRUGS (9)
  1. ALLI [Suspect]
     Indication: WEIGHT LOSS DIET
     Dosage: 1CAP THREE TIMES PER DAY
     Route: 048
  2. PHENAZOPYRIDINE HCL TAB [Concomitant]
  3. CEVIMELINE HYDROCHLORIDE [Concomitant]
  4. METHOTREXATE [Concomitant]
     Dosage: 15MG WEEKLY
  5. BENAZAPRIL [Concomitant]
     Dosage: 10MG PER DAY
  6. AZO STANDARD [Concomitant]
  7. EVOXAC [Concomitant]
     Dosage: 30MG PER DAY
  8. VITAMIN [Concomitant]
  9. FOLIC ACID [Concomitant]
     Dosage: 1MG PER DAY

REACTIONS (11)
  - ARTERIAL OCCLUSIVE DISEASE [None]
  - CHEST DISCOMFORT [None]
  - DECREASED APPETITE [None]
  - DYSPEPSIA [None]
  - ELECTROCARDIOGRAM Q WAVE ABNORMAL [None]
  - ELECTROCARDIOGRAM T WAVE INVERSION [None]
  - HEPATIC ENZYME INCREASED [None]
  - MYOCARDIAL INFARCTION [None]
  - NAUSEA [None]
  - PAIN [None]
  - VOMITING [None]
